FAERS Safety Report 8443227-4 (Version None)
Quarter: 2012Q2

REPORT INFORMATION
  Report Type: 
  Country: None (occurrence: None)
  Receive Date: 20120617
  Receipt Date: 20120608
  Transmission Date: 20120825
  Serious: Yes (Death, Life-Threatening, Other)
  Sender: FDA-Public Use
  Company Number: GB-ROXANE LABORATORIES, INC.-2012-RO-01380RO

PATIENT
  Age: 20 Week
  Sex: Male

DRUGS (4)
  1. PROTAMINE SULFATE [Suspect]
  2. CLOPIDOGREL [Suspect]
  3. ASPIRIN [Suspect]
  4. PHENYTOIN [Suspect]
     Indication: STATUS EPILEPTICUS

REACTIONS (8)
  - CEREBRAL ISCHAEMIA [None]
  - CONJUNCTIVITIS VIRAL [None]
  - PULMONARY ARTERY STENOSIS [None]
  - STATUS EPILEPTICUS [None]
  - SHUNT THROMBOSIS [None]
  - BRAIN OEDEMA [None]
  - DEATH [None]
  - PUPILS UNEQUAL [None]
